FAERS Safety Report 14392255 (Version 2)
Quarter: 2018Q3

REPORT INFORMATION
  Report Type: Report from Study
  Country: US (occurrence: US)
  Receive Date: 20180116
  Receipt Date: 20180816
  Transmission Date: 20181010
  Serious: Yes (Other)
  Sender: FDA-Public Use
  Company Number: US-GLAXOSMITHKLINE-US2018GSK004657

PATIENT
  Age: 75 Year
  Sex: Male

DRUGS (3)
  1. CHANTIX [Suspect]
     Active Substance: VARENICLINE TARTRATE
     Indication: EX-TOBACCO USER
     Dosage: UNK
     Dates: start: 201705
  2. FLUTICASONE PROPIONATE+SALMETEROL XINAFOATE [Suspect]
     Active Substance: FLUTICASONE PROPIONATE\SALMETEROL XINAFOATE
     Indication: PRODUCT USED FOR UNKNOWN INDICATION
  3. HUMIRA [Suspect]
     Active Substance: ADALIMUMAB
     Indication: PSORIATIC ARTHROPATHY
     Route: 058

REACTIONS (17)
  - Nasopharyngitis [Recovering/Resolving]
  - Dyspnoea [Unknown]
  - Urinary retention [Unknown]
  - Hiatus hernia [Recovered/Resolved]
  - Asthenia [Unknown]
  - Bronchitis chronic [Unknown]
  - Tremor [Unknown]
  - Heart rate increased [Unknown]
  - Poor quality sleep [Unknown]
  - Drug ineffective [Not Recovered/Not Resolved]
  - Decreased appetite [Unknown]
  - Chills [Unknown]
  - Constipation [Unknown]
  - Gait disturbance [Unknown]
  - Influenza [Recovered/Resolved]
  - Nail disorder [Not Recovered/Not Resolved]
  - Viral infection [Unknown]

NARRATIVE: CASE EVENT DATE: 201711
